FAERS Safety Report 16946959 (Version 2)
Quarter: 2019Q4

REPORT INFORMATION
  Report Type: Spontaneous
  Country: US (occurrence: US)
  Receive Date: 20191022
  Receipt Date: 20191029
  Transmission Date: 20200122
  Serious: Yes (Other)
  Sender: FDA-Public Use
  Company Number: US-PFIZER INC-2019454232

PATIENT
  Age: 18 Year
  Sex: Male

DRUGS (6)
  1. METHOTREXATE SODIUM. [Suspect]
     Active Substance: METHOTREXATE SODIUM
     Indication: OSTEOSARCOMA
     Dosage: UNK, CYCLIC (8 GM/M^2, MTX INFUSION)
     Route: 042
  2. CITROVORUM FACTOR [Suspect]
     Active Substance: LEUCOVORIN
     Indication: OSTEOSARCOMA
     Dosage: 12 MG, 4X/DAY (12 MG ORALLY EVERY 6 HOURS BEGINNING 8 HOURS AFTER THE HDMTX INFUSION)
     Route: 048
  3. VINCRISTINE SULFATE. [Suspect]
     Active Substance: VINCRISTINE SULFATE
     Indication: OSTEOSARCOMA
     Dosage: 1.5 MG/M2, CYCLIC (STANDARD DOSE OF 1.5 MG/RN^2 PRIOR TO THE HDMTX INFUSION)
  4. CYCLOPHOSPHAMIDE. [Suspect]
     Active Substance: CYCLOPHOSPHAMIDE
     Indication: OSTEOSARCOMA
     Dosage: UNK
  5. BLEOMYCIN SULFATE [Suspect]
     Active Substance: BLEOMYCIN SULFATE
     Indication: OSTEOSARCOMA
     Dosage: UNK
  6. ACTINOMYCIN D [Suspect]
     Active Substance: DACTINOMYCIN
     Indication: OSTEOSARCOMA
     Dosage: UNK

REACTIONS (8)
  - Hemianaesthesia [Recovered/Resolved]
  - Hemiplegia [Not Recovered/Not Resolved]
  - Neurological symptom [Recovered/Resolved]
  - Encephalopathy [Recovered/Resolved]
  - Dysarthria [Recovered/Resolved]
  - Cranial nerve palsies multiple [Recovered/Resolved]
  - Transient ischaemic attack [Recovered/Resolved]
  - Aphasia [Recovered/Resolved]
